FAERS Safety Report 9842509 (Version 2)
Quarter: 2014Q1

REPORT INFORMATION
  Report Type: Spontaneous
  Country: US (occurrence: US)
  Receive Date: 20140124
  Receipt Date: 20140124
  Transmission Date: 20141002
  Serious: Yes (Other)
  Sender: FDA-Public Use
  Company Number: US-ALLERGAN-1318666US

PATIENT
  Age: 27 Year
  Sex: Female

DRUGS (3)
  1. FABIOR FOAM, 0.1% [Suspect]
     Indication: ACNE
     Dosage: UNK
     Route: 061
     Dates: start: 20131106, end: 20131114
  2. DIFFERIN [Concomitant]
  3. SULFACETAMIDE SODIUM W/SULFUR [Concomitant]
     Indication: ACNE

REACTIONS (7)
  - Post inflammatory pigmentation change [Recovered/Resolved]
  - Application site irritation [Recovered/Resolved]
  - Application site erythema [Recovered/Resolved]
  - Application site exfoliation [Recovered/Resolved]
  - Dry skin [Recovered/Resolved]
  - Dermatitis acneiform [Recovered/Resolved]
  - Skin exfoliation [None]
